FAERS Safety Report 9434929 (Version 1)
Quarter: 2013Q3

REPORT INFORMATION
  Report Type: Spontaneous
  Country: US (occurrence: US)
  Receive Date: 20130801
  Receipt Date: 20130801
  Transmission Date: 20140515
  Serious: Yes (Other)
  Sender: FDA-Public Use
  Company Number: CHPA2013US011870

PATIENT
  Age: 82 Year
  Sex: Female

DRUGS (2)
  1. PERDIEM OVERNIGHT RELIEF PILLS [Suspect]
     Indication: CONSTIPATION
     Dosage: 1-2 TABLETS; QHS
     Route: 048
     Dates: start: 2011
  2. ENPIPRAZOLE [Concomitant]
     Indication: BLOOD CHOLESTEROL
     Dosage: UNK, UNK

REACTIONS (2)
  - Drug dependence [Not Recovered/Not Resolved]
  - Incorrect drug administration duration [Not Recovered/Not Resolved]
